FAERS Safety Report 21046839 (Version 3)
Quarter: 2022Q3

REPORT INFORMATION
  Report Type: Spontaneous
  Country: FR (occurrence: FR)
  Receive Date: 20220706
  Receipt Date: 20220729
  Transmission Date: 20221027
  Serious: Yes (Other)
  Sender: FDA-Public Use
  Company Number: None

PATIENT
  Age: 60 Year
  Sex: Male
  Weight: 59 kg

DRUGS (10)
  1. LANSOPRAZOLE [Suspect]
     Active Substance: LANSOPRAZOLE
     Dosage: UNK (STARTED BEFORE 2018)
     Route: 048
  2. GABAPENTIN [Suspect]
     Active Substance: GABAPENTIN
     Dosage: UNK (STARTED BEFORE 2018)
     Route: 048
  3. MOTILIUM [Suspect]
     Active Substance: DOMPERIDONE
     Dosage: UNK (STARTED BEFORE 2013)
     Route: 048
  4. ASCIMINIB [Suspect]
     Active Substance: ASCIMINIB
     Indication: Chronic myeloid leukaemia
     Dosage: 40 MG, 2X/DAY
     Route: 048
     Dates: start: 20200610
  5. ASCIMINIB [Suspect]
     Active Substance: ASCIMINIB
     Dosage: 80 MILLIGRAM, QD
     Route: 048
     Dates: start: 20200610
  6. LOPRAZOLAM [Suspect]
     Active Substance: LOPRAZOLAM
     Dosage: UNK (STARTED BEFORE 2013)
     Route: 048
  7. CLOTIAZEPAM [Suspect]
     Active Substance: CLOTIAZEPAM
     Dosage: UNK (STARTED BEFORE 2013)
     Route: 048
  8. LIDOCAINE [Concomitant]
     Active Substance: LIDOCAINE
     Dosage: UNK
  9. NALOXEGOL OXALATE [Concomitant]
     Active Substance: NALOXEGOL OXALATE
     Dosage: UNK
  10. OXYCODONE [Concomitant]
     Active Substance: OXYCODONE
     Dosage: UNK

REACTIONS (1)
  - Gynaecomastia [Not Recovered/Not Resolved]

NARRATIVE: CASE EVENT DATE: 20220501
